FAERS Safety Report 9531978 (Version 1)
Quarter: 2013Q3

REPORT INFORMATION
  Report Type: Spontaneous
  Country: US (occurrence: US)
  Receive Date: 20130918
  Receipt Date: 20130918
  Transmission Date: 20140515
  Serious: No
  Sender: FDA-Public Use
  Company Number: US-009507513-1309USA005851

PATIENT
  Age: 24 Year
  Sex: Female

DRUGS (1)
  1. IMPLANON [Suspect]
     Indication: CONTRACEPTION
     Dosage: 1 ROD FOR 3 YEARS
     Route: 059
     Dates: start: 201303

REACTIONS (7)
  - Dyspnoea [Unknown]
  - Malaise [Unknown]
  - Vision blurred [Unknown]
  - Muscle spasms [Unknown]
  - Abdominal pain [Unknown]
  - Hypoaesthesia [Unknown]
  - Weight increased [Unknown]
